FAERS Safety Report 22118509 (Version 2)
Quarter: 2023Q2

REPORT INFORMATION
  Report Type: Report from Study
  Country: US (occurrence: US)
  Receive Date: 20230321
  Receipt Date: 20230525
  Transmission Date: 20230722
  Serious: No
  Sender: FDA-Public Use
  Company Number: US-ABBVIE-4317203

PATIENT
  Age: 50 Year
  Sex: Male

DRUGS (1)
  1. HUMIRA [Suspect]
     Active Substance: ADALIMUMAB
     Indication: Product used for unknown indication
     Dosage: FORM STRENGTH: 40 MILLIGRAM
     Route: 058
     Dates: start: 20220317

REACTIONS (6)
  - Blood cholesterol increased [Unknown]
  - COVID-19 [Unknown]
  - Blood glucose increased [Unknown]
  - Chromaturia [Unknown]
  - Protein total increased [Unknown]
  - Psoriasis [Unknown]

NARRATIVE: CASE EVENT DATE: 20230412
